FAERS Safety Report 4541076-0 (Version None)
Quarter: 2004Q4

REPORT INFORMATION
  Report Type: 
  Country: None (occurrence: None)
  Receive Date: 20041228
  Receipt Date: 20041217
  Transmission Date: 20050328
  Serious: Yes (Hospitalization)
  Sender: FDA-Public Use
  Company Number: 2004100174

PATIENT
  Age: 42 Year
  Sex: Female
  Weight: 72.73 kg

DRUGS (6)
  1. EPIRUBICIN HYDROCHLORIDE (EPIRUBICIN HYDROCHLORIDE) [Suspect]
     Indication: BREAST CANCER
     Dosage: 185 MG (CYCLIC - EVERY 3 WEEKS, INTRAVENOUS
     Route: 042
     Dates: start: 20041006, end: 20041117
  2. DOCETAXEL (DOCETAXEL) [Suspect]
     Indication: BREAST CANCER
     Dosage: 130 MG (CYCLIC - EVERY 3 WEEKS), INTRAVENOUS
     Route: 042
     Dates: start: 20041006, end: 20041117
  3. PEGFILGRASTIM (PEGFILGRASTIM) [Suspect]
     Indication: ILL-DEFINED DISORDER
     Dosage: 6 MG (CYLIC - EVERY 3 WEEKS), SUBCUTANEOUS
     Route: 058
     Dates: start: 20041001, end: 20041118
  4. DEXAMETHASONE [Concomitant]
  5. PROCHLORPERAZINE [Concomitant]
  6. ONDANSETRON HCL [Concomitant]

REACTIONS (2)
  - CONSTIPATION [None]
  - FAECALOMA [None]
